FAERS Safety Report 5663893-6 (Version None)
Quarter: 2008Q1

REPORT INFORMATION
  Report Type: 
  Country: None (occurrence: None)
  Receive Date: 20080311
  Receipt Date: 20080215
  Transmission Date: 20080703
  Serious: Yes (Hospitalization)
  Sender: FDA-Public Use
  Company Number: 2002EU005408

PATIENT
  Age: 8 Year
  Sex: Male

DRUGS (7)
  1. PROGRAF [Suspect]
     Indication: LIVER TRANSPLANT
     Dosage: 4.5 MG, BID, ORAL
     Route: 048
     Dates: start: 20001215, end: 20020821
  2. PROGRAF [Suspect]
     Indication: LIVER TRANSPLANT
     Dosage: 4.5 MG, BID, ORAL
     Route: 048
     Dates: start: 20041202, end: 20050301
  3. CELLCEPT [Suspect]
     Indication: LIVER TRANSPLANT
     Dosage: 200 MG, D
     Dates: start: 20001215, end: 20020812
  4. ASPEGIC 1000 [Concomitant]
  5. CORTICOSTEROID NOS (CORTICOSTEROID NOS) [Concomitant]
  6. IMMUNOGLOBULINS (IMMUNOGLOBULINS) [Concomitant]
  7. RITUXIMAB (RITUXIMAB) [Concomitant]

REACTIONS (10)
  - DIARRHOEA HAEMORRHAGIC [None]
  - DRUG INEFFECTIVE [None]
  - ERYTHEMA INFECTIOSUM [None]
  - EVANS SYNDROME [None]
  - HAEMOLYTIC ANAEMIA [None]
  - LYMPHOPROLIFERATIVE DISORDER [None]
  - MIGRAINE [None]
  - PANCYTOPENIA [None]
  - PARVOVIRUS INFECTION [None]
  - THROMBOTIC THROMBOCYTOPENIC PURPURA [None]
